FAERS Safety Report 6928860-0 (Version None)
Quarter: 2010Q3

REPORT INFORMATION
  Report Type: 
  Country: None (occurrence: None)
  Receive Date: 20100817
  Receipt Date: 20100804
  Transmission Date: 20110219
  Serious: Yes (Death, Other)
  Sender: FDA-Public Use
  Company Number: FR-ABBOTT-08P-056-0436783-00

PATIENT
  Sex: Male
  Weight: 96 kg

DRUGS (8)
  1. HUMIRA [Suspect]
     Indication: RHEUMATOID ARTHRITIS
     Route: 058
     Dates: start: 20040505, end: 20070511
  2. HUMIRA [Concomitant]
     Indication: RHEUMATOID ARTHRITIS
     Dates: start: 20031031
  3. CORTANCYL [Concomitant]
     Indication: RHEUMATOID ARTHRITIS
  4. ATORVASTATIN CALCIUM [Concomitant]
     Indication: HYPERCHOLESTEROLAEMIA
  5. MEDIATOR [Concomitant]
     Indication: PRODUCT USED FOR UNKNOWN INDICATION
  6. RYTHMODAN [Concomitant]
     Indication: PRODUCT USED FOR UNKNOWN INDICATION
  7. TRIATEC [Concomitant]
     Indication: PRODUCT USED FOR UNKNOWN INDICATION
  8. DIDRONEL [Concomitant]
     Indication: OSTEOPOROSIS

REACTIONS (2)
  - METASTASES TO THE MEDIASTINUM [None]
  - METASTATIC NEOPLASM [None]
